FAERS Safety Report 12326336 (Version 1)
Quarter: 2016Q2

REPORT INFORMATION
  Report Type: Spontaneous
  Country: US (occurrence: None)
  Receive Date: 20160502
  Receipt Date: 20160502
  Transmission Date: 20160815
  Serious: Yes (Hospitalization)
  Sender: FDA-Public Use
  Company Number: None

PATIENT
  Age: 66 Year
  Sex: Female
  Weight: 64 kg

DRUGS (1)
  1. LUGOL [Suspect]
     Active Substance: IODINE\POTASSIUM IODIDE
     Indication: THYROID DISORDER
     Dosage: 3 ML PRIOR TO DATSCAN ORAL
     Route: 048
     Dates: start: 20160218, end: 20160218

REACTIONS (2)
  - Accidental overdose [None]
  - Product dropper issue [None]

NARRATIVE: CASE EVENT DATE: 20160218
